FAERS Safety Report 24190542 (Version 3)
Quarter: 2024Q3

REPORT INFORMATION
  Report Type: Spontaneous
  Country: US (occurrence: US)
  Receive Date: 20240808
  Receipt Date: 20240924
  Transmission Date: 20241017
  Serious: Yes (Life-Threatening, Other)
  Sender: NOVARTIS
  Company Number: US-002147023-NVSC2024US161636

PATIENT

DRUGS (1)
  1. COSENTYX [Suspect]
     Active Substance: SECUKINUMAB
     Indication: Product used for unknown indication
     Dosage: UNK
     Route: 065

REACTIONS (20)
  - Feeling abnormal [Unknown]
  - Suicidal ideation [Unknown]
  - Crying [Unknown]
  - Irritability [Unknown]
  - Vomiting [Unknown]
  - Dizziness [Unknown]
  - Malaise [Unknown]
  - Mental impairment [Unknown]
  - Loss of consciousness [Unknown]
  - Autoimmune disorder [Unknown]
  - Impulsive behaviour [Unknown]
  - Anger [Unknown]
  - Gastrointestinal disorder [Unknown]
  - Electric shock sensation [Unknown]
  - Vitreous floaters [Unknown]
  - Dyskinesia [Unknown]
  - Influenza [Unknown]
  - Pyrexia [Unknown]
  - Decreased appetite [Unknown]
  - Insomnia [Unknown]
